FAERS Safety Report 24787202 (Version 5)
Quarter: 2025Q4

REPORT INFORMATION
  Report Type: Spontaneous
  Country: CA (occurrence: CA)
  Receive Date: 20241230
  Receipt Date: 20251111
  Transmission Date: 20260117
  Serious: Yes (Other)
  Sender: CELLTRION
  Company Number: CA-CELLTRION INC.-2024CA032760

PATIENT

DRUGS (2)
  1. STEQEYMA [Suspect]
     Active Substance: USTEKINUMAB-STBA
     Indication: Crohn^s disease
     Dosage: 90MGQ8WEEKS
     Route: 058
     Dates: start: 20241017
  2. STEQEYMA [Suspect]
     Active Substance: USTEKINUMAB-STBA
     Dosage: 90MGQ4WEEKS
     Route: 058

REACTIONS (3)
  - Cataract operation [Unknown]
  - Anal fistula [Unknown]
  - Intentional product use issue [Unknown]

NARRATIVE: CASE EVENT DATE: 20241223
